FAERS Safety Report 17888728 (Version 2)
Quarter: 2020Q2

REPORT INFORMATION
  Report Type: Report from Study
  Country: RU (occurrence: RU)
  Receive Date: 20200612
  Receipt Date: 20200630
  Transmission Date: 20200714
  Serious: Yes (Other)
  Sender: FDA-Public Use
  Company Number: RU-BEH-2020118544

PATIENT
  Age: 20 Year
  Sex: Male

DRUGS (2)
  1. HUMAN FACTOR IX (NON-COMPANY) [Suspect]
     Active Substance: COAGULATION FACTOR IX HUMAN
     Indication: HAEMOPHILIA A WITH ANTI FACTOR VIII
     Dosage: UNK
     Route: 065
     Dates: start: 2014, end: 2014
  2. COAGIL-VII [Suspect]
     Active Substance: COAGULATION FACTOR VIIA RECOMBINANT HUMAN
     Indication: HAEMOPHILIA A WITH ANTI FACTOR VIII
     Route: 065

REACTIONS (3)
  - Therapeutic product cross-reactivity [Unknown]
  - Product use in unapproved indication [Unknown]
  - No adverse event [Unknown]

NARRATIVE: CASE EVENT DATE: 2014
